FAERS Safety Report 8086289-9 (Version None)
Quarter: 2012Q1

REPORT INFORMATION
  Report Type: 
  Country: None (occurrence: None)
  Receive Date: 20120128
  Receipt Date: 20110428
  Transmission Date: 20120608
  Serious: No
  Sender: FDA-Public Use
  Company Number: US-ABBOTT-11P-163-0722515-00

PATIENT
  Age: 25 Year
  Sex: Female

DRUGS (1)
  1. HUMIRA [Suspect]
     Indication: PSORIASIS
     Dates: start: 20110301

REACTIONS (10)
  - PAIN IN JAW [None]
  - INJECTION SITE URTICARIA [None]
  - INJECTION SITE PARAESTHESIA [None]
  - RASH PAPULAR [None]
  - INJECTION SITE RASH [None]
  - KIDNEY INFECTION [None]
  - RASH PRURITIC [None]
  - BACK PAIN [None]
  - MUSCLE SPASMS [None]
  - INJECTION SITE PAIN [None]
